FAERS Safety Report 9079622 (Version 1)
Quarter: 2013Q1

REPORT INFORMATION
  Report Type: Report from Study
  Country: US (occurrence: US)
  Receive Date: 20130130
  Receipt Date: 20130130
  Transmission Date: 20140127
  Serious: No
  Sender: FDA-Public Use
  Company Number: US-ABBOTT-12P-163-0963019-00

PATIENT
  Age: 72 Year
  Sex: Female

DRUGS (5)
  1. HUMIRA 40 MG/0.8 ML PEN [Suspect]
     Indication: RHEUMATOID ARTHRITIS
  2. AZOR [Concomitant]
     Indication: HYPERTENSION
     Dosage: DAILY
  3. GABAPENTIN [Concomitant]
     Indication: NEURALGIA
     Dates: start: 201202
  4. OXYBUTYNIN [Concomitant]
     Indication: MICTURITION URGENCY
     Dosage: AT BEDTIME
     Dates: start: 201205
  5. OMEPRAZOLE [Concomitant]
     Indication: GASTRIC DISORDER
     Dosage: 15 MINUTES BEFORE MEAL
     Dates: start: 201205

REACTIONS (7)
  - Restless legs syndrome [Not Recovered/Not Resolved]
  - Bladder disorder [Unknown]
  - Injection site haemorrhage [Unknown]
  - Device malfunction [Unknown]
  - Device malfunction [Unknown]
  - Incorrect dose administered [Unknown]
  - Incorrect dose administered [Unknown]
